FAERS Safety Report 22223212 (Version 1)
Quarter: 2023Q2

REPORT INFORMATION
  Report Type: Spontaneous
  Country: US (occurrence: None)
  Receive Date: 20230417
  Receipt Date: 20230417
  Transmission Date: 20230721
  Serious: Yes (Life-Threatening, Disabling)
  Sender: FDA-Public Use
  Company Number: None

PATIENT
  Age: 44 Year
  Sex: Female
  Weight: 85.5 kg

DRUGS (3)
  1. GABAPENTIN [Suspect]
     Active Substance: GABAPENTIN
     Indication: Product used for unknown indication
     Dosage: 1 CAPSULE  EVERY 8 HOURS ORAL
     Route: 048
     Dates: start: 20230115, end: 20230215
  2. MELOXICAM [Suspect]
     Active Substance: MELOXICAM
     Indication: Product used for unknown indication
     Dosage: 1 TABLET EVERY 12 HOURS ORAL?
     Route: 048
     Dates: start: 20220615, end: 20230215
  3. tronic syncromed ii [Concomitant]

REACTIONS (4)
  - Large intestinal haemorrhage [None]
  - Dizziness [None]
  - Unevaluable event [None]
  - Insurance issue [None]

NARRATIVE: CASE EVENT DATE: 20230115
